FAERS Safety Report 24463302 (Version 1)
Quarter: 2024Q4

REPORT INFORMATION
  Report Type: Report from Study
  Country: US (occurrence: US)
  Receive Date: 20241018
  Receipt Date: 20241018
  Transmission Date: 20250115
  Serious: No
  Sender: ROCHE
  Company Number: US-ROCHE-2727108

PATIENT
  Age: 69 Year
  Sex: Male

DRUGS (17)
  1. XOLAIR [Suspect]
     Active Substance: OMALIZUMAB
     Indication: Asthma
     Route: 058
  2. XOLAIR [Suspect]
     Active Substance: OMALIZUMAB
     Indication: Asthma
     Dosage: INJECT 375MG UNDER THE SKIN EVERY 4 WEEKS
     Route: 058
  3. CELEBREX [Concomitant]
     Active Substance: CELECOXIB
  4. BREO ELLIPTA [Concomitant]
     Active Substance: FLUTICASONE FUROATE\VILANTEROL TRIFENATATE
  5. ALBUTEROL [Concomitant]
     Active Substance: ALBUTEROL
  6. TRAZODONE [Concomitant]
     Active Substance: TRAZODONE HYDROCHLORIDE
  7. PAXIL [Concomitant]
     Active Substance: PAROXETINE HYDROCHLORIDE
  8. FLEXERIL [Concomitant]
     Active Substance: CYCLOBENZAPRINE HYDROCHLORIDE
  9. VISTARIL [Concomitant]
     Active Substance: HYDROXYZINE PAMOATE
  10. FLOMAX [Concomitant]
     Active Substance: TAMSULOSIN HYDROCHLORIDE
  11. XANAX [Concomitant]
     Active Substance: ALPRAZOLAM
  12. CRESTOR [Concomitant]
     Active Substance: ROSUVASTATIN CALCIUM
  13. EPIPEN [Concomitant]
     Active Substance: EPINEPHRINE
  14. ASPIRIN [Concomitant]
     Active Substance: ASPIRIN
  15. MELATONIN [Concomitant]
     Active Substance: MELATONIN
  16. MUCINEX [Concomitant]
     Active Substance: GUAIFENESIN
  17. ATARAX [Concomitant]
     Active Substance: HYDROXYZINE HYDROCHLORIDE

REACTIONS (2)
  - Off label use [Unknown]
  - No adverse event [Unknown]
